FAERS Safety Report 8904243 (Version 5)
Quarter: 2013Q2

REPORT INFORMATION
  Report Type: Report from Study
  Country: TW (occurrence: TW)
  Receive Date: 20121113
  Receipt Date: 20130621
  Transmission Date: 20140414
  Serious: Yes (Hospitalization)
  Sender: FDA-Public Use
  Company Number: PHHY2012TW090748

PATIENT
  Age: 58 Year
  Sex: Male
  Weight: 65.6 kg

DRUGS (8)
  1. ZOLEDRONATE [Suspect]
     Indication: METASTASES TO BONE
     Dosage: 4 MG, UNK
     Route: 042
     Dates: start: 20121005
  2. VELCADE [Concomitant]
  3. THALIDOMIDE [Concomitant]
     Indication: PLASMA CELL MYELOMA
     Dosage: 100 MG, UNK
     Dates: start: 20121002, end: 20121021
  4. THALIDOMIDE [Concomitant]
     Dosage: 100 MG, UNK
     Dates: start: 20130108, end: 20130121
  5. THALIDOMIDE [Concomitant]
     Dosage: 100 MG, UNK
     Dates: start: 20130416, end: 201306
  6. DEXAMETHASONE [Concomitant]
     Indication: BLOOD DISORDER
     Dosage: 8 MG, UNK
     Dates: start: 20120928, end: 20130116
  7. BORTEZOMIB [Concomitant]
     Indication: PLASMA CELL MYELOMA
     Dosage: 2.3 MG, UNK
     Dates: start: 201210, end: 20130115
  8. MELPHALAN [Concomitant]
     Indication: PLASMA CELL MYELOMA
     Dosage: 200 MG, PER IVF
     Dates: start: 20130225

REACTIONS (8)
  - Sepsis [Not Recovered/Not Resolved]
  - Urinary tract infection [Not Recovered/Not Resolved]
  - Osteomyelitis chronic [Not Recovered/Not Resolved]
  - Skin ulcer [Recovering/Resolving]
  - Wound infection staphylococcal [Not Recovered/Not Resolved]
  - Herpes simplex [Not Recovered/Not Resolved]
  - Infected fistula [Recovering/Resolving]
  - Pyrexia [Not Recovered/Not Resolved]
